FAERS Safety Report 17768232 (Version 4)
Quarter: 2020Q2

REPORT INFORMATION
  Report Type: Spontaneous
  Country: US (occurrence: US)
  Receive Date: 20200511
  Receipt Date: 20200629
  Transmission Date: 20200714
  Serious: Yes (Hospitalization)
  Sender: FDA-Public Use
  Company Number: US-ENDO PHARMACEUTICALS INC-2020-003588

PATIENT
  Age: 44 Year
  Sex: Male

DRUGS (9)
  1. PROPOFOL. [Concomitant]
     Active Substance: PROPOFOL
     Indication: SEDATIVE THERAPY
  2. PHENYTOIN. [Concomitant]
     Active Substance: PHENYTOIN
     Indication: SEIZURE
  3. VALPROIC ACID. [Concomitant]
     Active Substance: VALPROIC ACID
     Indication: SEIZURE
  4. KETALAR [Suspect]
     Active Substance: KETAMINE HYDROCHLORIDE
     Dosage: 2 MG/KG, INFUSION
     Route: 042
  5. LORAZEPAM. [Concomitant]
     Active Substance: LORAZEPAM
     Indication: SEIZURE
  6. LAMOTRIGINE. [Concomitant]
     Active Substance: LAMOTRIGINE
     Indication: SEIZURE
  7. KETALAR [Suspect]
     Active Substance: KETAMINE HYDROCHLORIDE
     Dosage: DOSE TITRATION(0.5-1.0 MG/KG/H INCREMENTS EVERY 6-8 H)WITH A FINAL DOSE OF 7.5, ACHIEVED AFTER 48HRS
     Route: 042
  8. KETALAR [Suspect]
     Active Substance: KETAMINE HYDROCHLORIDE
     Dosage: TITRATED DOWN BY 0.5-1.0 MG/KG/H EVERY 12H, OVER A 72 H PERIOD, INFUSION
     Route: 042
  9. KETALAR [Suspect]
     Active Substance: KETAMINE HYDROCHLORIDE
     Indication: STATUS EPILEPTICUS
     Dosage: 2 MG/KG, BOLUS (OVER TWO MINUTES)
     Route: 042

REACTIONS (3)
  - Neurotoxicity [Recovering/Resolving]
  - Off label use [Recovered/Resolved]
  - Nervous system disorder [Recovering/Resolving]
